FAERS Safety Report 25134169 (Version 4)
Quarter: 2025Q3

REPORT INFORMATION
  Report Type: Report from Study
  Country: US (occurrence: US)
  Receive Date: 20250328
  Receipt Date: 20250812
  Transmission Date: 20251021
  Serious: Yes (Hospitalization, Other)
  Sender: SUNOVION
  Company Number: US-SMPA-2025SPA003571

PATIENT
  Age: 81 Year
  Sex: Male

DRUGS (6)
  1. ORGOVYX [Suspect]
     Active Substance: RELUGOLIX
     Indication: Prostate cancer
     Route: 048
  2. ORGOVYX [Suspect]
     Active Substance: RELUGOLIX
     Dosage: 120 MG, QD
     Route: 048
     Dates: start: 20230617
  3. FUROSEMIDE [Suspect]
     Active Substance: FUROSEMIDE
     Indication: Pleural effusion
  4. FUROSEMIDE [Suspect]
     Active Substance: FUROSEMIDE
     Indication: Ascites
  5. PURE BAKING SODA [Suspect]
     Active Substance: SODIUM BICARBONATE
     Indication: Stomatitis
  6. XTANDI [Concomitant]
     Active Substance: ENZALUTAMIDE
     Indication: Prostate cancer

REACTIONS (9)
  - Ascites [Unknown]
  - Orthostatic hypotension [Unknown]
  - Blood pressure decreased [Unknown]
  - Fatigue [Unknown]
  - Pleural effusion [Unknown]
  - Blood urea nitrogen/creatinine ratio increased [Unknown]
  - Stomatitis [Unknown]
  - Oral discomfort [Unknown]
  - Therapy interrupted [Unknown]
